FAERS Safety Report 9407136 (Version 1)
Quarter: 2013Q3

REPORT INFORMATION
  Report Type: Spontaneous
  Country: US (occurrence: US)
  Receive Date: 20130718
  Receipt Date: 20130718
  Transmission Date: 20140515
  Serious: Yes (Other)
  Sender: FDA-Public Use
  Company Number: US-BAYER-2013-084395

PATIENT
  Age: 63 Year
  Sex: Female
  Weight: 138.32 kg

DRUGS (3)
  1. BAYER ADVANCED ASPIRIN EXTRA STRENGTH [Suspect]
     Indication: ARTHRITIS
     Dosage: 2 DF, PRN
     Route: 048
     Dates: start: 201105
  2. BAYER EXTRA STRENGTH BACK + BODY PAIN [Suspect]
     Indication: ARTHRITIS
     Dosage: 5 DF, PRN
     Route: 048
     Dates: end: 201105
  3. BAYER GENUINE ASPIRIN ORIGINAL STRENGTH [Suspect]
     Dosage: 1 DF, PRN
     Route: 048

REACTIONS (7)
  - Haemorrhage [Recovered/Resolved]
  - Product solubility abnormal [Recovered/Resolved]
  - Foaming at mouth [Recovered/Resolved]
  - Throat irritation [Recovered/Resolved]
  - Inappropriate schedule of drug administration [None]
  - Wrong technique in drug usage process [None]
  - Wrong technique in drug usage process [Recovered/Resolved]
